FAERS Safety Report 10452089 (Version 1)
Quarter: 2014Q3

REPORT INFORMATION
  Report Type: Spontaneous
  Country: US (occurrence: None)
  Receive Date: 20140910
  Receipt Date: 20140910
  Transmission Date: 20150326
  Serious: Yes (Other)
  Sender: FDA-Public Use
  Company Number: 2014SA122198

PATIENT
  Sex: Male

DRUGS (1)
  1. GOLD BOND ULTIMATE SOOTHING LOTION [Suspect]
     Active Substance: HERBALS
     Dates: start: 2014

REACTIONS (2)
  - Coma [None]
  - Cerebrovascular accident [None]
